FAERS Safety Report 11234061 (Version 1)
Quarter: 2015Q3

REPORT INFORMATION
  Report Type: Spontaneous
  Country: US (occurrence: US)
  Receive Date: 20150702
  Receipt Date: 20150702
  Transmission Date: 20151125
  Serious: Yes (Hospitalization, Other)
  Sender: FDA-Public Use
  Company Number: PHEH2015US012555

PATIENT
  Age: 50 Year
  Sex: Female

DRUGS (3)
  1. FORADIL [Suspect]
     Active Substance: FORMOTEROL FUMARATE
     Indication: ASTHMA
     Dosage: 2 DF, QD , IN THE MORNING
     Route: 055
     Dates: start: 1997
  2. ZETIA [Suspect]
     Active Substance: EZETIMIBE
     Indication: BLOOD CHOLESTEROL INCREASED
     Dosage: UNK
     Route: 048
     Dates: start: 2013
  3. FLEXERIL [Concomitant]
     Active Substance: CYCLOBENZAPRINE HYDROCHLORIDE
     Indication: PRODUCT USED FOR UNKNOWN INDICATION
     Route: 065

REACTIONS (9)
  - Blood cholesterol increased [Unknown]
  - Spinal compression fracture [Unknown]
  - Sinusitis [Unknown]
  - Movement disorder [Unknown]
  - Muscle spasms [Unknown]
  - Abasia [Recovered/Resolved]
  - Dysphagia [Unknown]
  - Hiatus hernia [Unknown]
  - Osteoarthritis [Unknown]

NARRATIVE: CASE EVENT DATE: 2002
